FAERS Safety Report 21664921 (Version 1)
Quarter: 2022Q4

REPORT INFORMATION
  Report Type: Spontaneous
  Country: CO (occurrence: CO)
  Receive Date: 20221130
  Receipt Date: 20221130
  Transmission Date: 20230113
  Serious: Yes (Other)
  Sender: FDA-Public Use
  Company Number: CO-PFIZER INC-PV202200095536

PATIENT
  Age: 63 Year
  Sex: Female

DRUGS (1)
  1. ENBREL [Suspect]
     Active Substance: ETANERCEPT
     Indication: Rheumatoid arthritis
     Dosage: 50 MILLIGRAM (EVERY 8 DAYS)
     Route: 058
     Dates: start: 2019, end: 202203

REACTIONS (3)
  - Gait disturbance [Unknown]
  - Illness [Unknown]
  - Joint injury [Unknown]

NARRATIVE: CASE EVENT DATE: 20220101
